FAERS Safety Report 5062047-4 (Version None)
Quarter: 2006Q3

REPORT INFORMATION
  Report Type: 
  Country: None (occurrence: None)
  Receive Date: 20060726
  Receipt Date: 20060515
  Transmission Date: 20061208
  Serious: Yes (Other)
  Sender: FDA-Public Use
  Company Number: PHMT2006CA01250

PATIENT
  Age: 50 Year
  Sex: Male

DRUGS (2)
  1. DRUG THERAPY NOS [Concomitant]
  2. ZOMETA [Suspect]
     Indication: PROSTATE CANCER
     Dates: start: 20030101, end: 20060301

REACTIONS (10)
  - BONE LESION [None]
  - BREATH ODOUR [None]
  - DENTAL OPERATION [None]
  - GINGIVAL DISORDER [None]
  - IMPAIRED HEALING [None]
  - OSTEONECROSIS [None]
  - PAIN IN JAW [None]
  - TOOTH DISORDER [None]
  - TOOTH EXTRACTION [None]
  - TOOTH FRACTURE [None]
